FAERS Safety Report 6418168-4 (Version None)
Quarter: 2009Q4

REPORT INFORMATION
  Report Type: 
  Country: None (occurrence: None)
  Receive Date: 20091028
  Receipt Date: 20091014
  Transmission Date: 20100525
  Serious: Yes (Death, Hospitalization, Other)
  Sender: FDA-Public Use
  Company Number: US-ELI_LILLY_AND_COMPANY-US200910003627

PATIENT
  Sex: Male

DRUGS (3)
  1. EFFIENT [Suspect]
     Dosage: 10 MG, DAILY (1/D)
     Route: 048
     Dates: start: 20090915
  2. PLAVIX [Concomitant]
     Dates: end: 20090915
  3. ASPIRIN [Concomitant]
     Dosage: 81 MG, UNK

REACTIONS (1)
  - VENTRICULAR TACHYCARDIA [None]
